FAERS Safety Report 8920820 (Version 1)
Quarter: 2012Q4

REPORT INFORMATION
  Report Type: 
  Country: US (occurrence: US)
  Receive Date: 20121122
  Receipt Date: 20121122
  Transmission Date: 20130627
  Serious: No
  Sender: FDA-Public Use
  Company Number: US-PFIZER INC-2012289525

PATIENT
  Sex: Male

DRUGS (1)
  1. INLYTA [Suspect]
     Indication: CARCINOMA KIDNEY
     Dosage: 2 mg, 2x/day
     Route: 048
     Dates: start: 20121015, end: 20121115

REACTIONS (2)
  - Disease progression [Unknown]
  - Renal cancer [Unknown]
